FAERS Safety Report 5332151-1 (Version None)
Quarter: 2007Q2

REPORT INFORMATION
  Report Type: 
  Country: None (occurrence: None)
  Receive Date: 20070521
  Receipt Date: 20070502
  Transmission Date: 20071010
  Serious: Yes (Hospitalization)
  Sender: FDA-Public Use
  Company Number: S07-AUT-02017-01

PATIENT
  Age: 71 Year
  Sex: Female
  Weight: 48 kg

DRUGS (19)
  1. ESCITALOPRAM [Suspect]
     Indication: DEPRESSION
     Dosage: 50  MG QD PO
     Route: 048
     Dates: start: 20070404, end: 20070424
  2. ESCITALOPRAM [Suspect]
     Indication: DEPRESSION
     Dosage: 40 MG QD PO
     Route: 048
     Dates: start: 20070425, end: 20070425
  3. ESCITALOPRAM [Suspect]
     Indication: DEPRESSION
     Dosage: 30 MG QD PO
     Route: 048
     Dates: start: 20070426, end: 20070426
  4. ESCITALOPRAM [Suspect]
     Indication: DEPRESSION
     Dosage: 20 MG QD PO
     Route: 048
     Dates: start: 20070427, end: 20070428
  5. ESCITALOPRAM [Suspect]
     Indication: DEPRESSION
     Dosage: 30 MG QD PO
     Route: 048
     Dates: end: 20070327
  6. ESCITALOPRAM [Suspect]
     Indication: DEPRESSION
     Dosage: 40 MG QD PO
     Route: 048
     Dates: start: 20070328, end: 20070403
  7. ESCITALOPRAM [Suspect]
     Indication: DEPRESSION
     Dosage: 10 MG QD PO
     Route: 048
     Dates: start: 20070429, end: 20070429
  8. LITHIUM CARBONATE [Suspect]
     Indication: DEPRESSION
     Dosage: 450 MG QD
     Dates: start: 20070423
  9. LITHIUM CARBONATE [Suspect]
     Indication: PSYCHOTIC DISORDER
     Dosage: 450 MG QD
     Dates: start: 20070423
  10. LITHIUM CARBONATE [Suspect]
     Indication: DEPRESSION
     Dosage: 675 MG DAILY
     Dates: end: 20070422
  11. LITHIUM CARBONATE [Suspect]
     Indication: PSYCHOTIC DISORDER
     Dosage: 675 MG DAILY
     Dates: end: 20070422
  12. RISPERDAL [Suspect]
     Indication: DEPRESSION
     Dosage: 1 MG QD
  13. RISPERDAL [Suspect]
     Indication: PSYCHOTIC DISORDER
     Dosage: 1 MG QD
  14. RISPERDAL [Suspect]
     Indication: DEPRESSION
     Dosage: 2 MG QD
     Dates: start: 20070404
  15. RISPERDAL [Suspect]
     Indication: PSYCHOTIC DISORDER
     Dosage: 2 MG QD
     Dates: start: 20070404
  16. EDRONAX (CYCLOPHOSPHAMIDE) (CYCLOPHOSPHAMIDE) [Concomitant]
  17. CLONAZEPAM [Concomitant]
  18. CEREBROSYL [Concomitant]
  19. NEXIUM [Concomitant]

REACTIONS (4)
  - EXTRAPYRAMIDAL DISORDER [None]
  - MUSCULOSKELETAL STIFFNESS [None]
  - PRESCRIBED OVERDOSE [None]
  - SALIVARY HYPERSECRETION [None]
